FAERS Safety Report 7668463-6 (Version None)
Quarter: 2011Q3

REPORT INFORMATION
  Report Type: 
  Country: None (occurrence: None)
  Receive Date: 20110808
  Receipt Date: 20110802
  Transmission Date: 20111222
  Serious: Yes (Hospitalization)
  Sender: FDA-Public Use
  Company Number: JP-SANOFI-AVENTIS-2011SA045954

PATIENT
  Age: 79 Year
  Sex: Male
  Weight: 56 kg

DRUGS (16)
  1. OXALIPLATIN [Suspect]
     Route: 041
     Dates: start: 20110411, end: 20110704
  2. FLUOROURACIL [Suspect]
     Dosage: 540 MG/BODY BOLUS THEN 3200 MG/BODY/D1-2
     Route: 040
     Dates: start: 20110411, end: 20110704
  3. KYTRIL [Concomitant]
     Indication: PREMEDICATION
     Route: 041
     Dates: start: 20110324, end: 20110620
  4. FLUOROURACIL [Suspect]
     Dosage: 540 MG/BODY BOLUS THEN 3200 MG/BODY/D1-2
     Route: 041
     Dates: start: 20110324, end: 20110324
  5. MEFRUSIDE [Concomitant]
     Indication: HYPERTENSION
     Route: 048
  6. OXALIPLATIN [Suspect]
     Indication: RECTAL CANCER
     Route: 041
     Dates: start: 20110324, end: 20110324
  7. LEUCOVORIN CALCIUM [Suspect]
     Indication: RECTAL CANCER
     Route: 041
     Dates: start: 20110324, end: 20110411
  8. FLUOROURACIL [Suspect]
     Indication: RECTAL CANCER
     Dosage: 540 MG/BODY BOLUS THEN 3200 MG/BODY/D1-2
     Route: 040
     Dates: start: 20110324, end: 20110324
  9. DEXAMETHASONE SODIUM PHOSPHATE [Concomitant]
     Indication: PREMEDICATION
     Dosage: DOSE: 6.6-3.3 MG
     Route: 041
     Dates: start: 20110324, end: 20110704
  10. EMEND [Concomitant]
     Indication: PROPHYLAXIS
     Dosage: DOSE: 125-80 MG
     Route: 048
     Dates: start: 20110704, end: 20110706
  11. DEXAMETHASONE SODIUM PHOSPHATE [Concomitant]
     Dosage: DOSE: 8-4 MG
     Route: 048
     Dates: start: 20110412, end: 20110706
  12. LEUCOVORIN CALCIUM [Suspect]
     Route: 041
     Dates: start: 20110606, end: 20110704
  13. FLUOROURACIL [Suspect]
     Dosage: 540 MG/BODY BOLUS THEN 3200 MG/BODY/D1-2
     Route: 041
     Dates: start: 20110411, end: 20110704
  14. ALOXI [Concomitant]
     Indication: PREMEDICATION
     Route: 041
     Dates: start: 20110704, end: 20110704
  15. NIFEDIPINE [Concomitant]
     Indication: HYPERTENSION
     Route: 048
  16. KALIMATE [Concomitant]
     Indication: RENAL IMPAIRMENT
     Route: 048

REACTIONS (2)
  - DEPRESSED LEVEL OF CONSCIOUSNESS [None]
  - HYPERAMMONAEMIA [None]
